FAERS Safety Report 24529541 (Version 1)
Quarter: 2024Q4

REPORT INFORMATION
  Report Type: Report from Study
  Country: CA (occurrence: CA)
  Receive Date: 20241021
  Receipt Date: 20241021
  Transmission Date: 20250115
  Serious: No
  Sender: ABBVIE
  Company Number: CA-ABBVIE-5933868

PATIENT
  Age: 58 Year
  Sex: Female

DRUGS (2)
  1. SKYRIZI [Suspect]
     Active Substance: RISANKIZUMAB-RZAA
     Indication: Crohn^s disease
     Dosage: FREQUENCY TEXT: WEEK 4
     Route: 058
     Dates: start: 20240913
  2. SKYRIZI [Suspect]
     Active Substance: RISANKIZUMAB-RZAA
     Indication: Crohn^s disease
     Route: 042
     Dates: start: 2024

REACTIONS (8)
  - Diarrhoea [Unknown]
  - Diarrhoea [Unknown]
  - Cholelithiasis [Unknown]
  - Muscle spasms [Unknown]
  - Food poisoning [Unknown]
  - Pain [Unknown]
  - Liver injury [Unknown]
  - Pancreatic injury [Unknown]

NARRATIVE: CASE EVENT DATE: 20240101
